FAERS Safety Report 4756373-3 (Version None)
Quarter: 2005Q3

REPORT INFORMATION
  Report Type: 
  Country: None (occurrence: None)
  Receive Date: 20050830
  Receipt Date: 20050610
  Transmission Date: 20060218
  Serious: No
  Sender: FDA-Public Use
  Company Number: US-GLAXOSMITHKLINE-A0562124A

PATIENT
  Age: 60 Year
  Sex: Female

DRUGS (1)
  1. WELLBUTRIN XL [Suspect]
     Dosage: 300MG PER DAY
     Route: 048
     Dates: start: 20050530, end: 20050604

REACTIONS (6)
  - CRYING [None]
  - DEPRESSION [None]
  - FATIGUE [None]
  - HUNGER [None]
  - TOBACCO ABUSE [None]
  - WEIGHT INCREASED [None]
